FAERS Safety Report 5204818-7 (Version None)
Quarter: 2007Q1

REPORT INFORMATION
  Report Type: 
  Country: None (occurrence: None)
  Receive Date: 20070110
  Receipt Date: 20060828
  Transmission Date: 20070707
  Serious: Yes (Hospitalization)
  Sender: FDA-Public Use
  Company Number: US-BRISTOL-MYERS SQUIBB COMPANY-13454624

PATIENT
  Age: 46 Year
  Sex: Female

DRUGS (5)
  1. ABILIFY [Suspect]
     Indication: DEPRESSION
     Dosage: 05-NOV-2003 TO 20-JUN-2006; 28-JUN-2006 TO 18-JUL-2006
     Route: 048
     Dates: start: 20031105, end: 20060718
  2. EFFEXOR XR [Concomitant]
  3. PROVIGIL [Concomitant]
     Dates: start: 20050501
  4. TOPAMAX [Concomitant]
  5. TOPROL-XL [Concomitant]

REACTIONS (4)
  - ASTHENIA [None]
  - DYSKINESIA [None]
  - DYSTONIA [None]
  - HYPOTONIA [None]
